FAERS Safety Report 8984689 (Version 1)
Quarter: 2012Q4

REPORT INFORMATION
  Report Type: 
  Country: US (occurrence: US)
  Receive Date: 20121225
  Receipt Date: 20121225
  Transmission Date: 20130627
  Serious: No
  Sender: FDA-Public Use
  Company Number: US-ASTRAZENECA-2012SE92413

PATIENT
  Age: 65 Year
  Sex: Female
  Weight: 63.5 kg

DRUGS (8)
  1. PULMICORT FLEXHALER [Suspect]
     Indication: BRONCHITIS
     Route: 055
     Dates: start: 20121203
  2. ATENOLOL [Suspect]
     Indication: ARRHYTHMIA
     Route: 048
  3. CYMBALTA [Concomitant]
     Indication: DEPRESSION
     Route: 048
  4. CYMBALTA [Concomitant]
     Indication: ANXIETY
     Route: 048
  5. WELBUTRIN [Concomitant]
     Indication: DEPRESSION
     Route: 048
  6. WELBUTRIN [Concomitant]
     Indication: ANXIETY
     Route: 048
  7. CLORAZEPATE [Concomitant]
     Indication: DEPRESSION
     Route: 048
  8. CLORAZEPATE [Concomitant]
     Indication: ANXIETY
     Route: 048

REACTIONS (3)
  - Cataract [Unknown]
  - Vision blurred [Not Recovered/Not Resolved]
  - Intentional drug misuse [Unknown]
